FAERS Safety Report 7003080-2 (Version None)
Quarter: 2010Q3

REPORT INFORMATION
  Report Type: 
  Country: None (occurrence: None)
  Receive Date: 20100920
  Receipt Date: 20100712
  Transmission Date: 20110219
  Serious: No
  Sender: FDA-Public Use
  Company Number: US-ASTRAZENECA-2010SE32433

PATIENT
  Age: 55 Year
  Sex: Female
  Weight: 81.6 kg

DRUGS (21)
  1. SEROQUEL [Suspect]
     Indication: BIPOLAR DISORDER
     Route: 048
     Dates: start: 19970101, end: 20100501
  2. SEROQUEL [Suspect]
     Route: 048
     Dates: start: 20100501
  3. GEODON [Suspect]
     Route: 065
  4. ABILIFY [Suspect]
     Route: 065
  5. OMEPRAZOLE [Concomitant]
     Indication: GASTROOESOPHAGEAL REFLUX DISEASE
     Route: 048
  6. CRESTOR [Concomitant]
     Indication: BLOOD CHOLESTEROL INCREASED
     Route: 048
  7. GLYBURIDE [Concomitant]
     Indication: DIABETES MELLITUS
     Route: 048
  8. AMOTRAGINE [Concomitant]
     Route: 048
  9. ZYRTEC [Concomitant]
     Indication: MULTIPLE ALLERGIES
     Route: 048
  10. METFORMIN [Concomitant]
     Indication: DIABETES MELLITUS
     Route: 048
  11. AMBIEN [Concomitant]
     Indication: INSOMNIA
     Route: 048
  12. ALDACTONE [Concomitant]
     Route: 048
  13. FENOFIBRATE [Concomitant]
     Route: 048
  14. HYZAAR [Concomitant]
     Indication: HYPERTENSION
     Dosage: 50/12.5 MG
     Route: 048
  15. SINGULAIR [Concomitant]
     Indication: MULTIPLE ALLERGIES
     Route: 048
  16. ASPIRIN [Concomitant]
     Route: 048
  17. VITAMIN D [Concomitant]
     Dosage: 5000 UNITS PER WEEK
  18. ADVAIR DISKUS 100/50 [Concomitant]
     Dosage: 50/100 MG DAILY
  19. LOVAZA [Concomitant]
  20. DEPAKOTE [Concomitant]
  21. LAMICTAL [Concomitant]

REACTIONS (8)
  - BLOOD TRIGLYCERIDES INCREASED [None]
  - FEELING ABNORMAL [None]
  - HOT FLUSH [None]
  - IMPAIRED WORK ABILITY [None]
  - INSOMNIA [None]
  - SOMNOLENCE [None]
  - TARDIVE DYSKINESIA [None]
  - WEIGHT INCREASED [None]
